FAERS Safety Report 23380450 (Version 1)
Quarter: 2024Q1

REPORT INFORMATION
  Report Type: Spontaneous
  Country: US (occurrence: US)
  Receive Date: 20240109
  Receipt Date: 20240109
  Transmission Date: 20240409
  Serious: No
  Sender: FDA-Public Use
  Company Number: US-002147023-NVSC2024US003177

PATIENT

DRUGS (1)
  1. KESIMPTA [Suspect]
     Active Substance: OFATUMUMAB
     Indication: Multiple sclerosis
     Dosage: UNK
     Route: 065

REACTIONS (8)
  - COVID-19 [Unknown]
  - Fungal infection [Unknown]
  - Urethritis [Unknown]
  - Burning sensation [Unknown]
  - Abdominal pain [Unknown]
  - Diarrhoea [Unknown]
  - Pyrexia [Unknown]
  - Urinary tract infection [Unknown]
